FAERS Safety Report 6529414-0 (Version None)
Quarter: 2009Q4

REPORT INFORMATION
  Report Type: 
  Country: None (occurrence: None)
  Receive Date: 20091231
  Receipt Date: 20091225
  Transmission Date: 20100525
  Serious: Yes (Other)
  Sender: FDA-Public Use
  Company Number: VISP-NO-0912S-0618

PATIENT
  Age: 55 Year
  Sex: Female

DRUGS (2)
  1. VISIPAQUE [Suspect]
     Indication: DRUG USE FOR UNKNOWN INDICATION
     Dosage: 100 ML, SINGLE DOSE, I.V.
     Route: 042
     Dates: start: 20091222, end: 20091222
  2. PROPRANOLOL [Concomitant]

REACTIONS (1)
  - PYREXIA [None]
